FAERS Safety Report 9603100 (Version 1)
Quarter: 2013Q4

REPORT INFORMATION
  Report Type: Spontaneous
  Country: US (occurrence: US)
  Receive Date: 20131007
  Receipt Date: 20131007
  Transmission Date: 20140711
  Serious: Yes (Hospitalization, Other)
  Sender: FDA-Public Use
  Company Number: US-GLAXOSMITHKLINE-B0926056A

PATIENT
  Age: 1 Day
  Sex: Female

DRUGS (4)
  1. DULOXETINE [Suspect]
     Indication: PRODUCT USED FOR UNKNOWN INDICATION
     Dosage: 90MGD PER DAY
     Route: 064
  2. LAMICTAL [Suspect]
     Indication: PRODUCT USED FOR UNKNOWN INDICATION
     Dosage: 100MGD PER DAY
     Route: 064
  3. SEROQUEL [Suspect]
     Indication: PRODUCT USED FOR UNKNOWN INDICATION
     Dosage: 200MG FOUR TIMES PER DAY
     Route: 064
  4. INSULIN [Suspect]
     Indication: GESTATIONAL DIABETES
     Route: 064

REACTIONS (11)
  - Drug withdrawal syndrome neonatal [Recovered/Resolved]
  - Hyperbilirubinaemia [Recovered/Resolved]
  - Feeling jittery [Recovered/Resolved]
  - Coordination abnormal [Recovered/Resolved]
  - Foetal exposure during pregnancy [Unknown]
  - Tremor [Recovered/Resolved]
  - Hyperreflexia [Recovered/Resolved]
  - Hypertonia [Recovered/Resolved]
  - Tachypnoea [Recovered/Resolved]
  - Irritability [Recovered/Resolved]
  - Weight decreased [Recovered/Resolved]
